FAERS Safety Report 7720205-1 (Version None)
Quarter: 2011Q3

REPORT INFORMATION
  Report Type: 
  Country: None (occurrence: None)
  Receive Date: 20110826
  Receipt Date: 20110826
  Transmission Date: 20111222
  Serious: Yes (Other)
  Sender: FDA-Public Use
  Company Number: None

PATIENT

DRUGS (1)
  1. SYNTHROID [Suspect]
     Indication: HYPOTHYROIDISM
     Dosage: 75MCG DAILY P.O.  PRESENT - LONG TERM
     Route: 048

REACTIONS (3)
  - BLOOD THYROID STIMULATING HORMONE INCREASED [None]
  - PRODUCT SUBSTITUTION ISSUE [None]
  - BLOOD THYROID STIMULATING HORMONE DECREASED [None]
